FAERS Safety Report 13647485 (Version 1)
Quarter: 2017Q2

REPORT INFORMATION
  Report Type: Report from Study
  Country: AU (occurrence: AU)
  Receive Date: 20170613
  Receipt Date: 20170613
  Transmission Date: 20170830
  Serious: Yes (Death, Life-Threatening, Hospitalization, Other)
  Sender: FDA-Public Use
  Company Number: AU-CELGENEUS-AUS-20170601263

PATIENT
  Age: 84 Year
  Sex: Male
  Weight: 60.5 kg

DRUGS (46)
  1. NORMAL SALINE [Concomitant]
     Active Substance: SODIUM CHLORIDE
     Indication: ATRIAL FIBRILLATION
     Dosage: 2 LITERS
     Route: 041
     Dates: start: 20170505, end: 20170507
  2. ASPIRIN. [Concomitant]
     Active Substance: ASPIRIN
     Indication: ANTICOAGULANT THERAPY
  3. PRAVACHOL [Concomitant]
     Active Substance: PRAVASTATIN SODIUM
     Indication: DYSLIPIDAEMIA
     Dosage: 80 MILLIGRAM
     Route: 048
     Dates: start: 2004
  4. PARACETAMOL [Concomitant]
     Active Substance: ACETAMINOPHEN
     Indication: FEBRILE NEUTROPENIA
     Route: 048
     Dates: start: 20170419, end: 20170419
  5. VALACICLOVIR [Concomitant]
     Active Substance: VALACYCLOVIR HYDROCHLORIDE
     Indication: ANTIVIRAL PROPHYLAXIS
     Dosage: 500 MILLIGRAM
     Route: 048
     Dates: start: 20170420
  6. FRUSEMIDE [Concomitant]
     Active Substance: FUROSEMIDE
     Indication: ATRIAL FIBRILLATION
     Dosage: 40 MILLIGRAM
     Route: 041
     Dates: start: 20170427, end: 20170428
  7. METOPROLOL. [Concomitant]
     Active Substance: METOPROLOL
     Dosage: 1500 MILLIGRAM
     Route: 048
     Dates: start: 20170507, end: 20170507
  8. VENETOCLAX [Suspect]
     Active Substance: VENETOCLAX
     Dosage: 400 MILLIGRAM
     Route: 048
     Dates: start: 20170405, end: 20170405
  9. NORMAL SALINE [Concomitant]
     Active Substance: SODIUM CHLORIDE
     Indication: FEBRILE NEUTROPENIA
     Dosage: 2 LITERS
     Route: 041
     Dates: start: 20170420, end: 20170423
  10. ALLOPURINOL. [Concomitant]
     Active Substance: ALLOPURINOL
     Indication: PROPHYLAXIS
     Route: 065
     Dates: start: 20170427, end: 20170524
  11. ANDROCUR [Concomitant]
     Active Substance: CYPROTERONE ACETATE
     Indication: PROSTATIC SPECIFIC ANTIGEN INCREASED
     Dosage: 80 MILLIGRAM
     Route: 048
     Dates: start: 2015, end: 20170408
  12. METOCLOPRAMIDE. [Concomitant]
     Active Substance: METOCLOPRAMIDE
     Indication: PROPHYLAXIS OF NAUSEA AND VOMITING
     Route: 048
     Dates: start: 20170403
  13. DULCOLAX NOS [Concomitant]
     Active Substance: BISACODYL OR DOCUSATE SODIUM
     Indication: CONSTIPATION
     Route: 048
     Dates: start: 20170410
  14. PIPERACILLIN AND TAZOBACTAM [Concomitant]
     Active Substance: PIPERACILLIN SODIUM\TAZOBACTAM SODIUM
     Indication: CELLULITIS
     Dosage: 18 GRAM
     Route: 041
     Dates: start: 20170418, end: 20170428
  15. FRUSEMIDE [Concomitant]
     Active Substance: FUROSEMIDE
     Dosage: 40 MILLIGRAM
     Route: 048
     Dates: start: 20170429, end: 20170501
  16. MAGNESIUM [Concomitant]
     Active Substance: MAGNESIUM
     Dosage: 1500 MILLIGRAM
     Route: 048
     Dates: start: 20170507, end: 20170507
  17. POTASSIUM W/SODIUM CHLORIDE [Concomitant]
     Active Substance: POTASSIUM
     Indication: ATRIAL FIBRILLATION
     Dosage: 30 MILLION
     Route: 041
     Dates: start: 20170425, end: 20170425
  18. NORMAL SALINE WITH MAGNESIUM SULPHATE [Concomitant]
     Indication: HYPOMAGNESAEMIA
     Dosage: 10 MILLION
     Route: 041
     Dates: start: 20170506, end: 20170506
  19. VENETOCLAX [Suspect]
     Active Substance: VENETOCLAX
     Dosage: 200 MILLIGRAM
     Route: 048
     Dates: start: 20170404, end: 20170404
  20. AMPHOTERICIN B LIPOSOMAL [Concomitant]
     Active Substance: AMPHOTERICIN B
     Indication: ANTIFUNGAL PROPHYLAXIS
     Dosage: 100 MILLIGRAM
     Route: 041
     Dates: start: 20170419, end: 20170424
  21. MAGNESIUM [Concomitant]
     Active Substance: MAGNESIUM
     Indication: HYPOMAGNESAEMIA
     Dosage: 40 MILLIGRAM
     Route: 048
     Dates: start: 20170429, end: 20170501
  22. NORMAL SALINE WITH MAGNESIUM SULPHATE [Concomitant]
     Indication: ATRIAL FIBRILLATION
     Dosage: 20 MILLION
     Route: 041
     Dates: start: 20170427, end: 20170427
  23. MACROGOL [Concomitant]
     Active Substance: POLYETHYLENE GLYCOLS
     Indication: CONSTIPATION
     Route: 048
     Dates: start: 20170514, end: 20170514
  24. NORMAL SALINE [Concomitant]
     Active Substance: SODIUM CHLORIDE
     Indication: PROPHYLAXIS
     Route: 041
     Dates: start: 20170402, end: 20170403
  25. ALLOPURINOL. [Concomitant]
     Active Substance: ALLOPURINOL
     Indication: TUMOUR LYSIS SYNDROME
     Route: 065
     Dates: start: 20170331, end: 20170418
  26. ASPIRIN. [Concomitant]
     Active Substance: ASPIRIN
     Indication: CORONARY ARTERY DISEASE
     Dosage: 100 MILLIGRAM
     Route: 048
     Dates: start: 2003, end: 20170403
  27. FENTANYL. [Concomitant]
     Active Substance: FENTANYL
     Indication: PAIN
     Dosage: 100 MICROGRAM
     Route: 041
     Dates: start: 20170428, end: 20170428
  28. POTASSIUM CHLORIDE. [Concomitant]
     Active Substance: POTASSIUM CHLORIDE
     Indication: HYPOKALAEMIA
     Dosage: 600 MILLIGRAM
     Route: 048
     Dates: start: 20170423, end: 20170427
  29. SODIUM PHOSPHATE [Concomitant]
     Active Substance: SODIUM PHOSPHATE
     Indication: HYPOPHOSPHATAEMIA
     Dosage: 1000 MILLIGRAM
     Route: 048
     Dates: start: 20170422, end: 20170507
  30. VENETOCLAX [Suspect]
     Active Substance: VENETOCLAX
     Indication: MYELODYSPLASTIC SYNDROME
     Dosage: 100 MILLIGRAM
     Route: 048
     Dates: start: 20170403, end: 20170403
  31. VENETOCLAX [Suspect]
     Active Substance: VENETOCLAX
     Dosage: 800 MILLIGRAM
     Route: 048
     Dates: start: 20170406, end: 20170419
  32. ONDANSETRON [Concomitant]
     Active Substance: ONDANSETRON
     Indication: PROPHYLAXIS OF NAUSEA AND VOMITING
     Dosage: 8 MILLIGRAM
     Route: 048
     Dates: start: 20170403
  33. MAGNESIUM [Concomitant]
     Active Substance: MAGNESIUM
     Indication: ATRIAL FIBRILLATION
     Dosage: 500 MILLIGRAM
     Route: 048
     Dates: start: 20170423, end: 20170502
  34. SODIUM LACTATE. [Concomitant]
     Active Substance: SODIUM LACTATE
     Indication: FEBRILE NEUTROPENIA
     Dosage: 3 LITERS
     Route: 041
     Dates: start: 20170422, end: 20170423
  35. DIGOXIN. [Concomitant]
     Active Substance: DIGOXIN
     Dosage: 62.5 MICROGRAM
     Route: 048
     Dates: start: 20170506, end: 20170510
  36. AZACITIDINE. [Suspect]
     Active Substance: AZACITIDINE
     Indication: MYELODYSPLASTIC SYNDROME
     Dosage: 130 MILLIGRAM
     Route: 058
     Dates: start: 20170403, end: 20170505
  37. ENOXAPARIN [Concomitant]
     Active Substance: ENOXAPARIN
     Indication: THROMBOSIS PROPHYLAXIS
     Dosage: 40 MILLIGRAM
     Route: 058
     Dates: start: 20170427, end: 20170501
  38. METOPROLOL. [Concomitant]
     Active Substance: METOPROLOL
     Indication: ATRIAL FIBRILLATION
     Dosage: 25 MILLIGRAM
     Route: 048
     Dates: start: 20170428, end: 20170524
  39. POTASSIUM CHLORIDE. [Concomitant]
     Active Substance: POTASSIUM CHLORIDE
     Indication: ATRIAL FIBRILLATION
     Dosage: 1200 MILLIGRAM
     Route: 048
     Dates: start: 20170428, end: 20170524
  40. LOPERIMIDE [Concomitant]
     Indication: DIARRHOEA
     Route: 048
     Dates: start: 20170501, end: 20170503
  41. DEXTROSE. [Concomitant]
     Active Substance: DEXTROSE
     Indication: FEBRILE NEUTROPENIA
     Dosage: 3 LITERS
     Route: 041
     Dates: start: 20170422, end: 20170422
  42. DIGOXIN. [Concomitant]
     Active Substance: DIGOXIN
     Indication: ATRIAL FIBRILLATION
     Dosage: 250 MICROGRAM
     Route: 041
     Dates: start: 20170505, end: 20170505
  43. PIPERACILLIN AND TAZOBACTAM [Concomitant]
     Active Substance: PIPERACILLIN SODIUM\TAZOBACTAM SODIUM
     Indication: FEBRILE NEUTROPENIA
  44. METOPROLOL. [Concomitant]
     Active Substance: METOPROLOL
     Dosage: 40 MILLIGRAM
     Route: 048
     Dates: start: 20170429, end: 20170501
  45. POTASSIUM W/SODIUM CHLORIDE [Concomitant]
     Active Substance: POTASSIUM
     Indication: HYPOKALAEMIA
     Dosage: 20 MILLION
     Route: 041
     Dates: start: 20170427, end: 20170427
  46. G-CSF [Concomitant]
     Active Substance: GRANULOCYTE COLONY-STIMULATING FACTOR NOS
     Indication: NEUTROPENIA
     Route: 058
     Dates: start: 20170418

REACTIONS (1)
  - Sepsis [Fatal]

NARRATIVE: CASE EVENT DATE: 20170524
